FAERS Safety Report 10501213 (Version 1)
Quarter: 2014Q4

REPORT INFORMATION
  Report Type: Spontaneous
  Country: US (occurrence: None)
  Receive Date: 20141006
  Receipt Date: 20141006
  Transmission Date: 20150528
  Serious: Yes (Other)
  Sender: FDA-Public Use
  Company Number: None

PATIENT
  Age: 76 Year
  Sex: Male
  Weight: 56.25 kg

DRUGS (1)
  1. XELODA [Suspect]
     Active Substance: CAPECITABINE
     Indication: COLON CANCER
     Route: 048
     Dates: start: 20140521, end: 20140920

REACTIONS (4)
  - Haematochezia [None]
  - Fatigue [None]
  - Chest pain [None]
  - Decreased appetite [None]

NARRATIVE: CASE EVENT DATE: 20140920
